FAERS Safety Report 8902784 (Version 2)
Quarter: 2012Q4

REPORT INFORMATION
  Report Type: 
  Country: US (occurrence: US)
  Receive Date: 20121113
  Receipt Date: 20121115
  Transmission Date: 20130627
  Serious: No
  Sender: FDA-Public Use
  Company Number: US-PFIZER INC-2012282797

PATIENT
  Age: 85 Year
  Sex: Male

DRUGS (6)
  1. DOXAZOSIN MESILATE [Suspect]
     Indication: BLOOD PRESSURE HIGH
     Dosage: 8 mg, UNK
  2. DOXAZOSIN MESILATE [Suspect]
     Dosage: 8 mg, daily
  3. BABY ASPIRIN [Concomitant]
     Dosage: 81 mg, daily
  4. NORVASC [Concomitant]
     Indication: BLOOD PRESSURE HIGH
     Dosage: 5 mg, daily
  5. ALTACE [Concomitant]
     Indication: BLOOD PRESSURE HIGH
     Dosage: UNK, daily
  6. LEVOXYL [Concomitant]
     Indication: THYROID DISORDER
     Dosage: 0.75 mg, daily

REACTIONS (1)
  - Blood pressure inadequately controlled [Recovered/Resolved]
